FAERS Safety Report 22098561 (Version 1)
Quarter: 2023Q1

REPORT INFORMATION
  Report Type: Spontaneous
  Country: US (occurrence: None)
  Receive Date: 20230314
  Receipt Date: 20230314
  Transmission Date: 20230417
  Serious: No
  Sender: FDA-Public Use
  Company Number: None

PATIENT
  Sex: Female

DRUGS (2)
  1. ETHINYL ESTRADIOL\NORETHINDRONE [Suspect]
     Active Substance: ETHINYL ESTRADIOL\NORETHINDRONE
     Dosage: OTHER QUANTITY : 0.8-25 MG-MCG ;?
  2. KAITLIB FE [Suspect]
     Active Substance: ETHINYL ESTRADIOL\NORETHINDRONE
     Dosage: OTHER QUANTITY : 0.8-25 MG-MCG ;?

REACTIONS (1)
  - Heavy menstrual bleeding [None]
